FAERS Safety Report 9747627 (Version 1)
Quarter: 2013Q4

REPORT INFORMATION
  Report Type: Spontaneous
  Country: US (occurrence: None)
  Receive Date: 20131206
  Receipt Date: 20131206
  Transmission Date: 20140711
  Serious: Yes (Death)
  Sender: FDA-Public Use
  Company Number: 2013P1021570

PATIENT
  Age: 54 Year
  Sex: Male

DRUGS (5)
  1. AMLODIPINE [Suspect]
  2. ACETAMINOPHEN [Suspect]
  3. LISINOPRIL [Suspect]
  4. BUPROPION [Suspect]
  5. QUETIAPINE [Suspect]

REACTIONS (1)
  - Toxicity to various agents [None]
